FAERS Safety Report 8135297-8 (Version None)
Quarter: 2012Q1

REPORT INFORMATION
  Report Type: 
  Country: None (occurrence: None)
  Receive Date: 20120214
  Receipt Date: 20120209
  Transmission Date: 20120608
  Serious: Yes (Other)
  Sender: FDA-Public Use
  Company Number: BR-PFIZER INC-2012035977

PATIENT
  Age: 75 Year
  Sex: Female
  Weight: 64 kg

DRUGS (1)
  1. ALPRAZOLAM [Suspect]
     Indication: SLEEP DISORDER
     Dosage: 2 MG, ONE TABLET AT NIGHT
     Route: 048
     Dates: start: 20110101

REACTIONS (5)
  - HEADACHE [None]
  - LABYRINTHITIS [None]
  - INFARCTION [None]
  - FALL [None]
  - HEAD INJURY [None]
